FAERS Safety Report 6751753-9 (Version None)
Quarter: 2010Q2

REPORT INFORMATION
  Report Type: 
  Country: None (occurrence: None)
  Receive Date: 20100602
  Receipt Date: 20100526
  Transmission Date: 20101027
  Serious: Yes (Hospitalization)
  Sender: FDA-Public Use
  Company Number: PHHO2006US15681

PATIENT
  Sex: Male

DRUGS (27)
  1. CERTICAN [Suspect]
     Indication: RENAL TRANSPLANT
     Dosage: 2 MG, BID
     Route: 048
     Dates: start: 20050718, end: 20051129
  2. CERTICAN [Suspect]
     Dosage: NO TREATMENT
     Route: 048
     Dates: start: 20051130, end: 20051130
  3. CERTICAN [Suspect]
     Dosage: 2 MG, BID
     Dates: start: 20051201, end: 20060917
  4. CERTICAN [Suspect]
     Dosage: 2 MG
     Dates: start: 20060918, end: 20060918
  5. CERTICAN [Suspect]
     Dosage: NO TREATMENT
     Dates: start: 20060919, end: 20061002
  6. CERTICAN [Suspect]
     Dosage: 2 MG
     Dates: start: 20061003, end: 20061003
  7. CERTICAN [Suspect]
     Dosage: 2 MG, BID
     Dates: start: 20061004, end: 20070226
  8. CERTICAN [Suspect]
     Dosage: 2 MG
     Dates: start: 20070227, end: 20070227
  9. CERTICAN [Suspect]
     Dosage: 2 MG, BID
     Dates: start: 20070228
  10. PROGRAF [Concomitant]
     Indication: TRANSPLANT
     Dosage: 2 MG, BID
     Route: 048
     Dates: start: 20050119
  11. PREDNISONE TAB [Concomitant]
     Indication: TRANSPLANT
     Dosage: 5 MG QD
     Route: 048
     Dates: start: 20050119
  12. ASPIRIN [Concomitant]
  13. ATENOLOL [Concomitant]
  14. CLONIDINE [Concomitant]
  15. COLACE [Concomitant]
  16. FISH OIL [Concomitant]
  17. FOSAMAX [Concomitant]
  18. HUMALOG [Concomitant]
  19. ILETIN [Concomitant]
  20. LIPITOR [Concomitant]
  21. NEXIUM [Concomitant]
  22. OSCAL [Concomitant]
  23. TESTOSTERONE [Concomitant]
  24. ZETIA [Concomitant]
  25. SIMVASTATIN [Concomitant]
  26. ENALAPRIL [Concomitant]
  27. INSULIN [Concomitant]

REACTIONS (7)
  - CONCOMITANT DISEASE PROGRESSION [None]
  - ERYTHEMA [None]
  - LOCALISED INFECTION [None]
  - OSTEOMYELITIS [None]
  - PURULENT DISCHARGE [None]
  - SKIN ULCER [None]
  - SWELLING [None]
